FAERS Safety Report 6269780-7 (Version None)
Quarter: 2009Q3

REPORT INFORMATION
  Report Type: 
  Country: None (occurrence: None)
  Receive Date: 20090716
  Receipt Date: 20090708
  Transmission Date: 20100115
  Serious: Yes (Other)
  Sender: FDA-Public Use
  Company Number: ZA-JNJFOC-20090700674

PATIENT
  Age: 9 Year
  Sex: Male

DRUGS (1)
  1. CONCERTA [Suspect]
     Indication: DRUG USE FOR UNKNOWN INDICATION
     Route: 048

REACTIONS (5)
  - ABNORMAL BEHAVIOUR [None]
  - DISTURBANCE IN ATTENTION [None]
  - HALLUCINATION [None]
  - HYPERAESTHESIA [None]
  - ORAL DISCOMFORT [None]
